FAERS Safety Report 5331935-3 (Version None)
Quarter: 2007Q2

REPORT INFORMATION
  Report Type: 
  Country: None (occurrence: None)
  Receive Date: 20070523
  Receipt Date: 20070516
  Transmission Date: 20071010
  Serious: Yes (Death)
  Sender: FDA-Public Use
  Company Number: FR-JNJFOC-20070305242

PATIENT
  Age: 77 Year
  Sex: Male

DRUGS (8)
  1. REMINYL [Suspect]
     Route: 048
  2. REMINYL [Suspect]
     Indication: DEMENTIA ALZHEIMER'S TYPE
     Route: 048
  3. RISPERDAL [Concomitant]
     Indication: AGGRESSION
  4. SEROPLEX [Concomitant]
     Indication: DEPRESSION
  5. SOLUPRED [Concomitant]
     Indication: BRONCHOPNEUMOPATHY
  6. FLUIMUCIL [Concomitant]
     Indication: BRONCHOPNEUMOPATHY
  7. IRBESARTAN [Concomitant]
     Indication: HYPERTENSION
  8. ISOPTIN [Concomitant]
     Indication: HYPERTENSION

REACTIONS (1)
  - PULMONARY EMBOLISM [None]
